FAERS Safety Report 17797141 (Version 2)
Quarter: 2020Q2

REPORT INFORMATION
  Report Type: Report from Study
  Country: None (occurrence: US)
  Receive Date: 20200518
  Receipt Date: 20200525
  Transmission Date: 20200714
  Serious: Yes (Other)
  Sender: FDA-Public Use
  Company Number: US-ABBVIE-20K-163-3400423-00

PATIENT
  Sex: Female

DRUGS (1)
  1. HUMIRA [Suspect]
     Active Substance: ADALIMUMAB
     Indication: UVEITIS
     Route: 058

REACTIONS (15)
  - Cataract [Not Recovered/Not Resolved]
  - Weight increased [Recovering/Resolving]
  - Feeling abnormal [Not Recovered/Not Resolved]
  - Nerve compression [Not Recovered/Not Resolved]
  - Dyspnoea [Recovering/Resolving]
  - Chest pain [Not Recovered/Not Resolved]
  - Drug ineffective [Not Recovered/Not Resolved]
  - Glaucoma [Not Recovered/Not Resolved]
  - Gait disturbance [Not Recovered/Not Resolved]
  - Cough [Not Recovered/Not Resolved]
  - Tremor [Not Recovered/Not Resolved]
  - Arthralgia [Not Recovered/Not Resolved]
  - Pain [Recovering/Resolving]
  - Pain in extremity [Not Recovered/Not Resolved]
  - Skin striae [Not Recovered/Not Resolved]
